FAERS Safety Report 15249582 (Version 1)
Quarter: 2018Q3

REPORT INFORMATION
  Report Type: Spontaneous
  Country: CN (occurrence: CN)
  Receive Date: 20180807
  Receipt Date: 20180807
  Transmission Date: 20181010
  Serious: Yes (Other)
  Sender: FDA-Public Use
  Company Number: CN-PFIZER INC-2018312143

PATIENT
  Age: 48 Year
  Sex: Female

DRUGS (1)
  1. MEDROL [Suspect]
     Active Substance: METHYLPREDNISOLONE
     Indication: MESANGIOPROLIFERATIVE GLOMERULONEPHRITIS
     Dosage: 20 MG, 1X/DAY
     Route: 048
     Dates: start: 20180619

REACTIONS (2)
  - Skin striae [Recovering/Resolving]
  - Haemorrhage subcutaneous [Recovering/Resolving]

NARRATIVE: CASE EVENT DATE: 20180625
